FAERS Safety Report 24116021 (Version 1)
Quarter: 2024Q3

REPORT INFORMATION
  Report Type: Spontaneous
  Country: US (occurrence: US)
  Receive Date: 20240722
  Receipt Date: 20240722
  Transmission Date: 20241017
  Serious: Yes (Other)
  Sender: BRISTOL MYERS SQUIBB
  Company Number: US-BRISTOL-MYERS SQUIBB COMPANY-2024-113881

PATIENT
  Age: 78 Year
  Sex: Female
  Weight: 72.12 kg

DRUGS (5)
  1. ELIQUIS [Suspect]
     Active Substance: APIXABAN
     Indication: Atrial fibrillation
     Route: 048
  2. INDERAL [Suspect]
     Active Substance: PROPRANOLOL HYDROCHLORIDE
     Indication: Product used for unknown indication
  3. CYMBALTA [Suspect]
     Active Substance: DULOXETINE HYDROCHLORIDE
     Indication: Product used for unknown indication
  4. CYMBALTA [Suspect]
     Active Substance: DULOXETINE HYDROCHLORIDE
  5. VITAMIN B [Concomitant]
     Active Substance: VITAMIN B
     Indication: Product used for unknown indication
     Dosage: 100

REACTIONS (9)
  - Inflammation [Unknown]
  - Rhinorrhoea [Unknown]
  - Blood magnesium decreased [Unknown]
  - Spondylitis [Unknown]
  - Blood sodium decreased [Unknown]
  - Dizziness [Unknown]
  - Nephrolithiasis [Unknown]
  - Memory impairment [Unknown]
  - Blood uric acid increased [Unknown]
